FAERS Safety Report 7772580-X (Version None)
Quarter: 2011Q3

REPORT INFORMATION
  Report Type: 
  Country: None (occurrence: None)
  Receive Date: 20110922
  Receipt Date: 20110916
  Transmission Date: 20111222
  Serious: Yes (Death, Hospitalization)
  Sender: FDA-Public Use
  Company Number: DE-CELGENEUS-062-50794-11072670

PATIENT
  Age: 84 Year
  Sex: Male
  Weight: 84 kg

DRUGS (3)
  1. CEFPODOXIME PROXETIL [Concomitant]
     Dosage: 400 MILLIGRAM
     Route: 048
     Dates: start: 20110726, end: 20110728
  2. VIDAZA [Suspect]
     Dosage: 148MG
     Route: 058
     Dates: start: 20110606
  3. EXJADE [Concomitant]
     Indication: IRON OVERLOAD
     Dosage: 500 MILLIGRAM
     Route: 048
     Dates: start: 20110211

REACTIONS (2)
  - DEATH [None]
  - PYREXIA [None]
